FAERS Safety Report 20747073 (Version 7)
Quarter: 2023Q2

REPORT INFORMATION
  Report Type: Spontaneous
  Country: US (occurrence: US)
  Receive Date: 20220425
  Receipt Date: 20230621
  Transmission Date: 20230721
  Serious: Yes (Other)
  Sender: FDA-Public Use
  Company Number: US-PFIZER INC-202200321854

PATIENT
  Age: 72 Year
  Sex: Female
  Weight: 72.12 kg

DRUGS (3)
  1. IBRANCE [Suspect]
     Active Substance: PALBOCICLIB
     Indication: Breast cancer metastatic
     Dosage: 125 MG
     Dates: start: 20210524
  2. IBRANCE [Suspect]
     Active Substance: PALBOCICLIB
     Dosage: 75 MG, CYCLIC, (GLASS OF WATER THREE WEEKS AND OFF A WEEK)
     Dates: start: 202105
  3. IBRANCE [Suspect]
     Active Substance: PALBOCICLIB
     Dosage: 75 MG, CYCLIC, (2 WEEKS ON, 2 WEEKS OFF CYCLE)

REACTIONS (7)
  - Full blood count decreased [Unknown]
  - Neoplasm progression [Unknown]
  - Peripheral swelling [Unknown]
  - Dyspnoea [Unknown]
  - Lymphoedema [Unknown]
  - Off label use [Unknown]
  - Product dispensing error [Unknown]

NARRATIVE: CASE EVENT DATE: 20210101
